FAERS Safety Report 10053327 (Version 2)
Quarter: 2014Q2

REPORT INFORMATION
  Report Type: Spontaneous
  Country: US (occurrence: US)
  Receive Date: 20140402
  Receipt Date: 20140424
  Transmission Date: 20141212
  Serious: Yes (Disabling, Other)
  Sender: FDA-Public Use
  Company Number: US-ASTRAZENECA-2014SE21149

PATIENT
  Age: 57 Year
  Sex: Female
  Weight: 98 kg

DRUGS (14)
  1. NEXIUM [Suspect]
     Indication: GASTROOESOPHAGEAL REFLUX DISEASE
     Route: 048
     Dates: start: 20100208, end: 20120524
  2. OMEPRAZOLE [Suspect]
     Indication: GASTROOESOPHAGEAL REFLUX DISEASE
     Route: 048
     Dates: start: 20130524, end: 20140318
  3. PRISTIQ [Concomitant]
     Indication: DEPRESSION
     Route: 048
     Dates: start: 2012
  4. XANAX [Concomitant]
     Indication: NERVOUS SYSTEM DISORDER
     Dosage: 1MG QAM, 2TAB HS
     Route: 048
  5. METOLAZONE [Concomitant]
     Indication: BLOOD PRESSURE ABNORMAL
     Route: 048
     Dates: start: 2011
  6. LOPRESSOR [Concomitant]
     Indication: CARDIAC DISORDER
     Route: 048
  7. LASIX [Concomitant]
     Indication: SUPPLEMENTATION THERAPY
     Route: 048
  8. POTASSIUM [Concomitant]
     Indication: BLOOD POTASSIUM DECREASED
     Route: 048
  9. GENERIC SYNTHROID [Concomitant]
     Indication: THYROID DISORDER
     Route: 048
     Dates: start: 1999
  10. LEXAPRO [Concomitant]
     Indication: ANXIETY
     Dosage: 20MG 1 1/2 DAILY
     Route: 048
     Dates: start: 2013
  11. TRAMADOL [Concomitant]
     Indication: BACK PAIN
     Route: 048
     Dates: start: 201309
  12. MAGNESIUM [Concomitant]
     Indication: BLOOD MAGNESIUM DECREASED
     Route: 048
  13. ASPIRIN [Concomitant]
     Indication: CARDIAC DISORDER
     Route: 048
     Dates: start: 2011
  14. NITROGLYCERIN [Concomitant]
     Indication: CHEST PAIN
     Route: 050
     Dates: start: 2013

REACTIONS (9)
  - Cardiac failure congestive [Unknown]
  - Hiatus hernia [Unknown]
  - Loss of consciousness [Unknown]
  - Gastrooesophageal reflux disease [Unknown]
  - Sleep disorder [Unknown]
  - Panic disorder [Unknown]
  - Drug dose omission [Unknown]
  - Drug ineffective [Unknown]
  - Gastrooesophageal reflux disease [Unknown]
